FAERS Safety Report 24273552 (Version 2)
Quarter: 2024Q4

REPORT INFORMATION
  Report Type: Spontaneous
  Country: US (occurrence: US)
  Receive Date: 20240902
  Receipt Date: 20241107
  Transmission Date: 20250115
  Serious: Yes (Disabling, Other)
  Sender: ABBVIE
  Company Number: US-ABBVIE-5897278

PATIENT
  Age: 63 Year
  Sex: Male

DRUGS (30)
  1. HUMIRA [Suspect]
     Active Substance: ADALIMUMAB
     Indication: Inflammation
     Route: 058
     Dates: start: 202101, end: 20211018
  2. HUMIRA [Suspect]
     Active Substance: ADALIMUMAB
     Indication: Rheumatoid arthritis
     Dosage: SN- 100001489866?ORIGINAL UNOPENED LAST DOSE - 06 OCT 2021
     Route: 058
  3. PREDNISONE [Suspect]
     Active Substance: PREDNISONE
     Indication: Rheumatoid arthritis
     Dosage: 20 MG
     Route: 048
  4. PREDNISONE [Suspect]
     Active Substance: PREDNISONE
     Indication: Rheumatoid arthritis
     Dosage: 15 MG
     Route: 048
  5. PREDNISONE [Suspect]
     Active Substance: PREDNISONE
     Indication: Rheumatoid arthritis
     Route: 048
  6. VALCYTE [Concomitant]
     Active Substance: VALGANCICLOVIR HYDROCHLORIDE
     Indication: Product used for unknown indication
  7. DUREZOL [Suspect]
     Active Substance: DIFLUPREDNATE
     Indication: Product used for unknown indication
     Dosage: 0.05 % EYE DROPS INSTILL 1 DROP BY OPHTHALMIC ROUTE EVERY HOUR INTO AFFECTED EYE(S) ;START 24HRS ...
     Route: 047
     Dates: start: 20211020
  8. DUREZOL [Suspect]
     Active Substance: DIFLUPREDNATE
     Indication: Product used for unknown indication
     Route: 047
  9. AMLODIPINE [Concomitant]
     Active Substance: AMLODIPINE BESYLATE
     Indication: Product used for unknown indication
     Dosage: 2.5MG TAKE 1 TABLET BY ORAL ROUTE EVERY DAY
     Route: 048
  10. ATORVASTATIN [Concomitant]
     Active Substance: ATORVASTATIN
     Indication: Product used for unknown indication
     Dosage: STRENGTH 10 MG TAKE 1 TABLET BY ORAL ROUTE EVERY DAY
     Route: 048
  11. HYDROCODONE BITARTRATE [Concomitant]
     Active Substance: HYDROCODONE BITARTRATE
     Indication: Product used for unknown indication
     Dosage: STRENGTH 10 MG  EXTENDED RELESE 12 HOURS
     Route: 048
  12. AMBIEN [Concomitant]
     Active Substance: ZOLPIDEM TARTRATE
     Indication: Product used for unknown indication
     Dosage: STRENGTH 5 MG TAKE 0.5 TABLET EVERY DAY AT BEDTIME
     Route: 048
  13. FAMOTIDINE [Concomitant]
     Active Substance: FAMOTIDINE
     Indication: Product used for unknown indication
     Dosage: STRENGTH 10 MG AS NEEDED
     Route: 048
  14. NEXIUM [Concomitant]
     Active Substance: ESOMEPRAZOLE MAGNESIUM
     Indication: Product used for unknown indication
     Dosage: STRENGTH 20 MG TAKE 1 CAPSULE BY ORAL ROUTE EVERY DAY ATLEAST 1 HOUR BEFORE A MEAL SWALLOWING WHO...
     Route: 048
  15. SUMATRIPTAN [Concomitant]
     Active Substance: SUMATRIPTAN
     Indication: Product used for unknown indication
     Dosage: STRENGTH 5 MG/ACTUATION SPRAY 1 SPRAY BY INTRANASAL ROUTE ONCE; IF  HEADACHE RETURNS, DOSE MAY BE...
     Route: 045
  16. FLUCELVAX QUADRIVALENT NOS [Concomitant]
     Active Substance: INFLUENZA A VIRUS A/BRISBANE/10/2010 (H1N1) ANTIGEN (MDCK CELL DERIVED, PROPIOLACTONE INACTIVATED)\I
     Indication: Product used for unknown indication
     Dosage: 60 MCG (14 MCG X 4)/ 0.5 ML INTRAMUSCULAR SUSPENSION
     Route: 030
     Dates: start: 2020, end: 2021
  17. HYDROXYCHLOROQUINE [Concomitant]
     Active Substance: HYDROXYCHLOROQUINE
     Indication: Arthritis
     Route: 048
  18. HYDROXYCHLOROQUINE [Concomitant]
     Active Substance: HYDROXYCHLOROQUINE
     Indication: Arthritis
     Route: 048
  19. ATENOLOL [Concomitant]
     Active Substance: ATENOLOL
     Indication: Product used for unknown indication
     Dosage: STRENGTH 2.5 MG
     Route: 048
  20. TAMSULOSIN [Concomitant]
     Active Substance: TAMSULOSIN
     Indication: Product used for unknown indication
     Dosage: STRENGTH 0.4 MG TAKE 1 CAPSULE BY ORAL ROUTE EVERY DAY 1/2 HOUR FOLLOWING THE SAME MEAL EACH DAY
     Route: 048
  21. TRAZODONE [Concomitant]
     Active Substance: TRAZODONE HYDROCHLORIDE
     Indication: Product used for unknown indication
     Dosage: TRAZODONE 50 MG TAKE 1 TABLET BY ORAL ROUTE EVERY DAY AT BEDTIME
     Route: 048
  22. AMITRIPTYLINE [Concomitant]
     Active Substance: AMITRIPTYLINE
     Indication: Product used for unknown indication
     Dosage: STRENGTH 10 MG TAKE 1 TABLET BY ORAL ROUTE EVERY DAY AT BEDTIME
     Route: 048
  23. CREON [Concomitant]
     Active Substance: PANCRELIPASE AMYLASE\PANCRELIPASE LIPASE\PANCRELIPASE PROTEASE
     Indication: Product used for unknown indication
     Dosage: 12,000-38,000-60,000 UNIT ( 2 CAPSULE BY ORAL ROUTE 3 TIMES EVERY DAY WITH MEALS AND 1 CAPSULE WI...
     Route: 048
  24. AKTEN [Concomitant]
     Active Substance: LIDOCAINE HYDROCHLORIDE
     Indication: Product used for unknown indication
  25. VALACYCLOVIR [Suspect]
     Active Substance: VALACYCLOVIR HYDROCHLORIDE
     Indication: Product used for unknown indication
     Dosage: TIME INTERVAL: 0.33333333 DAYS
     Route: 048
     Dates: start: 20211029, end: 20211112
  26. VALACYCLOVIR [Suspect]
     Active Substance: VALACYCLOVIR HYDROCHLORIDE
     Indication: Product used for unknown indication
     Route: 048
  27. VALACYCLOVIR [Suspect]
     Active Substance: VALACYCLOVIR HYDROCHLORIDE
     Indication: Product used for unknown indication
     Route: 048
  28. ATROPINE [Suspect]
     Active Substance: ATROPINE
     Indication: Product used for unknown indication
     Route: 065
     Dates: end: 20220112
  29. OFLOXACIN [Concomitant]
     Active Substance: OFLOXACIN
     Indication: Product used for unknown indication
  30. ERYTHROMYCIN [Concomitant]
     Active Substance: ERYTHROMYCIN
     Indication: Product used for unknown indication

REACTIONS (30)
  - Wrist fracture [Not Recovered/Not Resolved]
  - Blindness unilateral [Not Recovered/Not Resolved]
  - Vision blurred [Unknown]
  - Fear [Not Recovered/Not Resolved]
  - Vitreous floaters [Unknown]
  - Blindness [Not Recovered/Not Resolved]
  - Gait disturbance [Not Recovered/Not Resolved]
  - Varicella [Recovered/Resolved]
  - Uveitis [Recovering/Resolving]
  - Retinal detachment [Not Recovered/Not Resolved]
  - Fall [Unknown]
  - Eye pain [Recovered/Resolved]
  - Headache [Not Recovered/Not Resolved]
  - Dermatochalasis [Unknown]
  - Immunosuppression [Unknown]
  - Eye pain [Not Recovered/Not Resolved]
  - Corneal oedema [Not Recovered/Not Resolved]
  - Concussion [Unknown]
  - Acute kidney injury [Unknown]
  - Optic neuritis [Not Recovered/Not Resolved]
  - Demyelination [Unknown]
  - Balance disorder [Not Recovered/Not Resolved]
  - Cataract [Recovering/Resolving]
  - Fatigue [Unknown]
  - Dyspnoea [Unknown]
  - Herpes virus infection [Unknown]
  - Iris adhesions [Unknown]
  - Inflammation [Unknown]
  - Cataract subcapsular [Unknown]
  - Rash [Unknown]

NARRATIVE: CASE EVENT DATE: 20210101
